FAERS Safety Report 23553861 (Version 2)
Quarter: 2024Q1

REPORT INFORMATION
  Report Type: Spontaneous
  Country: AE (occurrence: AE)
  Receive Date: 20240222
  Receipt Date: 20240305
  Transmission Date: 20240410
  Serious: Yes (Hospitalization)
  Sender: FDA-Public Use
  Company Number: AE-PFIZER INC-PV202400023353

PATIENT
  Age: 37 Year
  Sex: Female

DRUGS (2)
  1. IBRANCE [Suspect]
     Active Substance: PALBOCICLIB
     Dosage: 125 MG, DAILY FOR 3 WEEKS FOLLOWED BY 1 WEEK OFF
     Route: 048
     Dates: start: 20231114, end: 20240202
  2. CALCIUM [Concomitant]
     Active Substance: CALCIUM
     Indication: Hormone receptor positive HER2 negative breast cancer

REACTIONS (3)
  - Infection [Recovering/Resolving]
  - Cholelithiasis [Unknown]
  - Neoplasm progression [Unknown]
